FAERS Safety Report 21396844 (Version 1)
Quarter: 2022Q3

REPORT INFORMATION
  Report Type: Spontaneous
  Country: US (occurrence: None)
  Receive Date: 20220930
  Receipt Date: 20220930
  Transmission Date: 20221027
  Serious: Yes (Other)
  Sender: FDA-Public Use
  Company Number: None

PATIENT
  Age: 75 Year
  Sex: Female
  Weight: 63 kg

DRUGS (8)
  1. OXALIPLATIN [Suspect]
     Active Substance: OXALIPLATIN
     Indication: Rectal cancer
     Dosage: OTHER FREQUENCY : Q2WEEK;?
     Route: 041
     Dates: start: 20220719
  2. OXALIPLATIN [Suspect]
     Active Substance: OXALIPLATIN
     Indication: Rectal cancer
     Dosage: OTHER FREQUENCY : Q2WEEK;?
     Route: 041
     Dates: start: 20220719
  3. FAMOTIDINE [Concomitant]
     Active Substance: FAMOTIDINE
     Dates: start: 20220719
  4. DIPHENHYDRAMINE [Concomitant]
     Active Substance: DIPHENHYDRAMINE
     Dates: start: 20220719
  5. ONDANSETRON [Concomitant]
     Active Substance: ONDANSETRON
     Dates: start: 20220719
  6. DEXAMETHASONE [Concomitant]
     Active Substance: DEXAMETHASONE
     Dates: start: 20220719
  7. LEUCOVORIN [Concomitant]
     Active Substance: LEUCOVORIN
     Dates: start: 20220719
  8. FLUOROURACIL [Concomitant]
     Active Substance: FLUOROURACIL
     Dates: start: 20220719

REACTIONS (4)
  - Nausea [None]
  - Aphasia [None]
  - Dizziness [None]
  - Muscle contractions involuntary [None]

NARRATIVE: CASE EVENT DATE: 20220915
